FAERS Safety Report 10220171 (Version 1)
Quarter: 2014Q2

REPORT INFORMATION
  Report Type: Spontaneous
  Country: US (occurrence: US)
  Receive Date: 20140605
  Receipt Date: 20140605
  Transmission Date: 20141212
  Serious: No
  Sender: FDA-Public Use
  Company Number: US-009507513-1405USA015119

PATIENT
  Age: 13 Year
  Sex: Male
  Weight: 49.89 kg

DRUGS (2)
  1. CLARITIN CHEWABLE TABLETS [Suspect]
     Indication: SEASONAL ALLERGY
     Dosage: 1 EVERY 12 HOURS, SEASONAL AS NEEDED
     Route: 048
  2. CLARITIN CHEWABLE TABLETS [Suspect]
     Dosage: 2 DF, BID
     Route: 048
     Dates: start: 20140525, end: 20140525

REACTIONS (1)
  - Overdose [Unknown]
